FAERS Safety Report 5425650-5 (Version None)
Quarter: 2007Q3

REPORT INFORMATION
  Report Type: 
  Country: None (occurrence: None)
  Receive Date: 20070824
  Receipt Date: 20070814
  Transmission Date: 20080115
  Serious: Yes (Other)
  Sender: FDA-Public Use
  Company Number: US-PFIZER INC-2007067979

PATIENT
  Sex: Male
  Weight: 70.5 kg

DRUGS (6)
  1. XALATAN [Suspect]
     Indication: GLAUCOMA
  2. ALL OTHER THERAPEUTIC PRODUCTS [Concomitant]
     Indication: FAMILIAL TREMOR
  3. FLOVENT [Concomitant]
     Indication: EMPHYSEMA
  4. SPIRIVA [Concomitant]
     Indication: RESPIRATORY DISORDER
  5. ALLOPURINOL [Concomitant]
     Indication: GOUT
  6. COLCHICINE [Concomitant]
     Indication: GOUT

REACTIONS (10)
  - BRONCHITIS [None]
  - CATARACT [None]
  - CATARACT OPERATION [None]
  - CHEST X-RAY ABNORMAL [None]
  - EMPHYSEMA [None]
  - GLAUCOMA SURGERY [None]
  - INTRAOCULAR PRESSURE INCREASED [None]
  - OPTIC NERVE DISORDER [None]
  - PNEUMONIA [None]
  - VISUAL DISTURBANCE [None]
